FAERS Safety Report 8360662-3 (Version None)
Quarter: 2012Q2

REPORT INFORMATION
  Report Type: 
  Country: None (occurrence: None)
  Receive Date: 20120515
  Receipt Date: 20120507
  Transmission Date: 20120825
  Serious: Yes (Hospitalization)
  Sender: FDA-Public Use
  Company Number: JP-VERTEX PHARMACEUTICALS INC.-AE-2012-002363

PATIENT
  Age: 51 Year
  Sex: Male

DRUGS (5)
  1. TELAVIC (TELAPREVIR) [Suspect]
     Indication: HEPATITIS C
     Route: 048
     Dates: start: 20120207, end: 20120209
  2. PEG-INTRON [Concomitant]
     Route: 058
     Dates: start: 20120207
  3. SILECE [Concomitant]
     Route: 048
  4. REBETOL [Concomitant]
     Route: 048
     Dates: start: 20120207
  5. ERIMIN [Concomitant]
     Route: 048

REACTIONS (1)
  - RASH PRURITIC [None]
